FAERS Safety Report 17386504 (Version 1)
Quarter: 2020Q1

REPORT INFORMATION
  Report Type: Other
  Country: CZ (occurrence: CZ)
  Receive Date: 20200206
  Receipt Date: 20200206
  Transmission Date: 20200409
  Serious: Yes (Hospitalization, Other)
  Sender: FDA-Public Use
  Company Number: CZ-EMD SERONO-E2B_90074631

PATIENT
  Age: 85 Year
  Sex: Male

DRUGS (8)
  1. TRIMETAZIDINE HYDROCHLORIDE [Suspect]
     Active Substance: TRIMETAZIDINE DIHYDROCHLORIDE
     Indication: PRODUCT USED FOR UNKNOWN INDICATION
     Route: 065
  2. ACETYLSALICYLIC ACID [Suspect]
     Active Substance: ASPIRIN
     Indication: PRODUCT USED FOR UNKNOWN INDICATION
     Route: 065
  3. ISOSORBIDE MONONITRATE. [Suspect]
     Active Substance: ISOSORBIDE MONONITRATE
     Indication: PRODUCT USED FOR UNKNOWN INDICATION
     Route: 065
  4. ACEBUTOLOL HYDROCHLORIDE. [Suspect]
     Active Substance: ACEBUTOLOL HYDROCHLORIDE
     Indication: PRODUCT USED FOR UNKNOWN INDICATION
     Route: 065
  5. AMIODARONE HYDROCHLORIDE. [Suspect]
     Active Substance: AMIODARONE HYDROCHLORIDE
     Indication: PRODUCT USED FOR UNKNOWN INDICATION
     Route: 065
  6. METFORMIN [Suspect]
     Active Substance: METFORMIN HYDROCHLORIDE
     Indication: PRODUCT USED FOR UNKNOWN INDICATION
     Route: 065
  7. LEVOTHYROXINE SODIUM. [Suspect]
     Active Substance: LEVOTHYROXINE SODIUM
     Indication: PRODUCT USED FOR UNKNOWN INDICATION
     Route: 065
  8. PERINDOPRIL/INDAPAMIDE [Suspect]
     Active Substance: INDAPAMIDE\PERINDOPRIL
     Indication: PRODUCT USED FOR UNKNOWN INDICATION
     Route: 065

REACTIONS (1)
  - Linear IgA disease [Recovered/Resolved]

NARRATIVE: CASE EVENT DATE: 201702
